FAERS Safety Report 5400221-5 (Version None)
Quarter: 2007Q3

REPORT INFORMATION
  Report Type: 
  Country: None (occurrence: None)
  Receive Date: 20070725
  Receipt Date: 20070710
  Transmission Date: 20080115
  Serious: Yes (Disabling, Other)
  Sender: FDA-Public Use
  Company Number: 111783ISR

PATIENT
  Age: 25 Year
  Sex: Male

DRUGS (4)
  1. CISPLATIN [Suspect]
     Indication: TESTIS CANCER
     Dosage: CYCLICAL (40 MG/M2)
  2. ETOPOSIDE [Suspect]
     Indication: TESTIS CANCER
     Dosage: CYCLICAL (165 MG/M2)
  3. BLEOMYCIN [Suspect]
     Indication: TESTIS CANCER
     Dosage: CYCLICAL (20 IU)
  4. DEXAMETHASONE [Suspect]
     Indication: PROPHYLAXIS OF NAUSEA AND VOMITING
     Dosage: 8 MG(8 MG ON DAY 1), 4 MG (4 MG, ON DAY 2 TO 5 OF EACH CYCLE), ORAL
     Route: 048

REACTIONS (3)
  - BONE SWELLING [None]
  - GROIN PAIN [None]
  - OSTEONECROSIS [None]
